FAERS Safety Report 12592398 (Version 1)
Quarter: 2016Q3

REPORT INFORMATION
  Report Type: Spontaneous
  Country: US (occurrence: None)
  Receive Date: 20160725
  Receipt Date: 20160725
  Transmission Date: 20161109
  Serious: No
  Sender: FDA-Public Use
  Company Number: None

PATIENT
  Age: 3 Year
  Sex: Male

DRUGS (5)
  1. LIDO/PRILOCN [Concomitant]
  2. IBU [Concomitant]
     Active Substance: IBUPROFEN
  3. POLYETH GLYC [Concomitant]
     Active Substance: POLYETHYLENE GLYCOLS
  4. ATROPINE. [Concomitant]
     Active Substance: ATROPINE
  5. ZELBORAF [Suspect]
     Active Substance: VEMURAFENIB
     Indication: BRAIN NEOPLASM MALIGNANT
     Route: 048
     Dates: start: 20160711

REACTIONS (3)
  - Wrong technique in product usage process [None]
  - Sunburn [None]
  - Eye pain [None]

NARRATIVE: CASE EVENT DATE: 201607
